FAERS Safety Report 7460963-7 (Version None)
Quarter: 2011Q2

REPORT INFORMATION
  Report Type: 
  Country: None (occurrence: None)
  Receive Date: 20110505
  Receipt Date: 20110425
  Transmission Date: 20111010
  Serious: Yes (Other)
  Sender: FDA-Public Use
  Company Number: IL-TEVA-279117ISR

PATIENT
  Age: 64 Year
  Sex: Female

DRUGS (3)
  1. PENTOXIFYLLINE [Suspect]
  2. PAMIDRONIC ACID [Suspect]
     Route: 042
  3. TOCOPHEROL CONCENTRATE CAP [Suspect]

REACTIONS (1)
  - OSTEONECROSIS OF JAW [None]
